FAERS Safety Report 7118688-3 (Version None)
Quarter: 2010Q4

REPORT INFORMATION
  Report Type: 
  Country: None (occurrence: None)
  Receive Date: 20101027
  Receipt Date: 20091013
  Transmission Date: 20110411
  Serious: Yes (Other)
  Sender: FDA-Public Use
  Company Number: US-WYE-H11623209

PATIENT
  Age: 68 Year
  Sex: Female
  Weight: 72.64 kg

DRUGS (1)
  1. PREMARIN [Suspect]
     Indication: HORMONE REPLACEMENT THERAPY
     Dosage: 0.625 MG 1X PER 1 WK, VAGINAL
     Route: 067
     Dates: start: 20090601

REACTIONS (5)
  - ABDOMINAL DISTENSION [None]
  - FATIGUE [None]
  - MUSCLE SPASMS [None]
  - URINARY TRACT INFECTION [None]
  - VISION BLURRED [None]
